FAERS Safety Report 4475752-5 (Version None)
Quarter: 2004Q3

REPORT INFORMATION
  Report Type: 
  Country: None (occurrence: None)
  Receive Date: 20040923
  Receipt Date: 20040708
  Transmission Date: 20050211
  Serious: No
  Sender: FDA-Public Use
  Company Number: USA040772066

PATIENT
  Age: 77 Year
  Sex: Female
  Weight: 51 kg

DRUGS (1)
  1. FORTEO [Suspect]
     Indication: OSTEOPOROSIS
     Dosage: 20 UG/1 DAY
     Dates: start: 20040501

REACTIONS (6)
  - BACK INJURY [None]
  - BRONCHITIS [None]
  - ILL-DEFINED DISORDER [None]
  - JOINT INJURY [None]
  - MOBILITY DECREASED [None]
  - PAIN [None]
